FAERS Safety Report 6463732-X (Version None)
Quarter: 2009Q4

REPORT INFORMATION
  Report Type: 
  Country: None (occurrence: None)
  Receive Date: 20091201
  Receipt Date: 20091123
  Transmission Date: 20100525
  Serious: Yes (Hospitalization, Other)
  Sender: FDA-Public Use
  Company Number: NO-ASTRAZENECA-2009SE28582

PATIENT
  Age: 27 Year
  Sex: Female

DRUGS (2)
  1. ATACAND [Suspect]
     Indication: PULMONARY ARTERIAL HYPERTENSION
     Route: 048
  2. NORMORIX MITE [Suspect]

REACTIONS (3)
  - DRUG EXPOSURE DURING PREGNANCY [None]
  - OLIGOHYDRAMNIOS [None]
  - PREMATURE RUPTURE OF MEMBRANES [None]
